FAERS Safety Report 6992365-1 (Version None)
Quarter: 2010Q3

REPORT INFORMATION
  Report Type: 
  Country: None (occurrence: None)
  Receive Date: 20100917
  Receipt Date: 20100915
  Transmission Date: 20110219
  Serious: Yes (Death)
  Sender: FDA-Public Use
  Company Number: JP-SANOFI-AVENTIS-2010SA055432

PATIENT
  Age: 68 Year
  Sex: Male

DRUGS (2)
  1. TAXOTERE [Suspect]
     Indication: LUNG SQUAMOUS CELL CARCINOMA STAGE IV
     Dates: start: 20060317, end: 20060701
  2. TAXOTERE [Suspect]
     Dates: start: 20070312

REACTIONS (2)
  - PNEUMONIA [None]
  - PNEUMOTHORAX [None]
